FAERS Safety Report 21192296 (Version 1)
Quarter: 2022Q3

REPORT INFORMATION
  Report Type: Report from Study
  Country: PL (occurrence: PL)
  Receive Date: 20220809
  Receipt Date: 20220809
  Transmission Date: 20221027
  Serious: Yes (Other)
  Sender: FDA-Public Use
  Company Number: PL-Merck Healthcare KGaA-9339089

PATIENT
  Age: 70 Year
  Sex: Female

DRUGS (30)
  1. IRINOTECAN HYDROCHLORIDE [Suspect]
     Active Substance: IRINOTECAN HYDROCHLORIDE
     Indication: Colorectal cancer metastatic
     Dates: start: 20210902, end: 20210902
  2. IRINOTECAN HYDROCHLORIDE [Suspect]
     Active Substance: IRINOTECAN HYDROCHLORIDE
     Dosage: 180 MG/M2
     Dates: start: 20200108
  3. LEUCOVORIN [Suspect]
     Active Substance: LEUCOVORIN
     Indication: Colorectal cancer metastatic
     Dates: start: 20200108
  4. LEUCOVORIN [Suspect]
     Active Substance: LEUCOVORIN
     Dosage: 200 MG/M2
     Dates: start: 20211207
  5. FLUOROURACIL [Suspect]
     Active Substance: FLUOROURACIL
     Indication: Colorectal cancer metastatic
     Dates: start: 20200108
  6. FLUOROURACIL [Suspect]
     Active Substance: FLUOROURACIL
     Dosage: 600 MG/M2
     Dates: start: 20211207
  7. FLUOROURACIL [Suspect]
     Active Substance: FLUOROURACIL
     Dosage: 400 MG/M2
     Dates: start: 20211207
  8. FLUOROURACIL [Suspect]
     Active Substance: FLUOROURACIL
     Dosage: 600 MG/M2
     Dates: start: 20200108
  9. CETUXIMAB [Suspect]
     Active Substance: CETUXIMAB
     Indication: Colorectal cancer metastatic
     Dates: start: 20200108
  10. CETUXIMAB [Suspect]
     Active Substance: CETUXIMAB
     Dosage: 500 MG/M2
     Dates: start: 20211207
  11. PARAFFINUM LIQUIDUM [Concomitant]
     Indication: Product used for unknown indication
     Dates: start: 20200126
  12. APIXABANUM [Concomitant]
     Indication: Product used for unknown indication
     Dates: start: 20210526
  13. OMEPRAZOLE [Concomitant]
     Active Substance: OMEPRAZOLE
     Indication: Product used for unknown indication
     Dates: start: 20200720
  14. ATROPINE [Concomitant]
     Active Substance: ATROPINE
     Indication: Product used for unknown indication
     Dates: start: 20200108, end: 20210209
  15. LYMECYCLINUM [Concomitant]
     Indication: Product used for unknown indication
     Dates: start: 20211230, end: 20220118
  16. ENOXAPARINUM NATRICUM [Concomitant]
     Indication: Product used for unknown indication
     Dates: start: 20200615
  17. THIETHYLPERAZINUM [Concomitant]
     Indication: Product used for unknown indication
     Dates: start: 20200108
  18. FILGRASTIMUM [Concomitant]
     Indication: Product used for unknown indication
     Dates: start: 20200127, end: 20220214
  19. LOPERAMIDI HYDROCHLORIDUM [Concomitant]
     Indication: Product used for unknown indication
     Dates: start: 20200108
  20. FAMOTIDINE [Concomitant]
     Active Substance: FAMOTIDINE
     Indication: Product used for unknown indication
     Dates: start: 20200127
  21. DEXAMETHASONE PHOSPHATE [Concomitant]
     Active Substance: DEXAMETHASONE PHOSPHATE
     Indication: Product used for unknown indication
     Dates: start: 20200108
  22. KETOPROFENUM [Concomitant]
     Indication: Product used for unknown indication
     Dates: start: 20220323
  23. CALCIUM CHLORIDE\MAGNESIUM CHLORIDE\POTASSIUM CHLORIDE\SODIUM ACETATE\ [Concomitant]
     Active Substance: CALCIUM CHLORIDE\MAGNESIUM CHLORIDE\POTASSIUM CHLORIDE\SODIUM ACETATE\SODIUM CHLORIDE\SODIUM CITRATE
     Indication: Product used for unknown indication
     Dates: start: 20201116, end: 20201120
  24. HYDROCORTISONUM [HYDROCORTISONE] [Concomitant]
     Indication: Product used for unknown indication
     Dates: start: 20200108
  25. PREDNISONE [Concomitant]
     Active Substance: PREDNISONE
     Indication: Product used for unknown indication
     Dates: start: 20210323, end: 20210323
  26. ELECTROLYTES NOS [Concomitant]
     Active Substance: ELECTROLYTES NOS
     Indication: Product used for unknown indication
     Dates: start: 20200128, end: 20220214
  27. NADROPARIN CALCIUM [Concomitant]
     Active Substance: NADROPARIN CALCIUM
     Indication: Product used for unknown indication
     Dates: start: 20200108, end: 20220213
  28. ACETAMINOPHEN [Concomitant]
     Active Substance: ACETAMINOPHEN
     Indication: Product used for unknown indication
     Dates: start: 20200126
  29. ONDANSETRON [Concomitant]
     Active Substance: ONDANSETRON
     Indication: Product used for unknown indication
     Dates: start: 20200108
  30. CLEMASTINUM [CLEMASTINE] [Concomitant]
     Indication: Product used for unknown indication
     Dates: start: 20200108

REACTIONS (3)
  - Paronychia [Not Recovered/Not Resolved]
  - Rash [Not Recovered/Not Resolved]
  - Off label use [Unknown]

NARRATIVE: CASE EVENT DATE: 20211228
